FAERS Safety Report 13148876 (Version 1)
Quarter: 2017Q1

REPORT INFORMATION
  Report Type: Spontaneous
  Country: US (occurrence: US)
  Receive Date: 20170124
  Receipt Date: 20170124
  Transmission Date: 20170428
  Serious: No
  Sender: FDA-Public Use
  Company Number: None

PATIENT
  Age: 62 Year
  Sex: Male

DRUGS (1)
  1. SUTENT [Suspect]
     Active Substance: SUNITINIB MALATE
     Indication: RENAL CANCER
     Dosage: 50MG ONCE DAILY FOR 4 WEEKS ON THEN BY MOUTH
     Route: 048
     Dates: start: 20160629, end: 20161004

REACTIONS (3)
  - Decreased appetite [None]
  - Motor dysfunction [None]
  - Skin discolouration [None]

NARRATIVE: CASE EVENT DATE: 20160930
